FAERS Safety Report 5352049-2 (Version None)
Quarter: 2007Q2

REPORT INFORMATION
  Report Type: 
  Country: None (occurrence: None)
  Receive Date: 20070611
  Receipt Date: 20070605
  Transmission Date: 20071010
  Serious: Yes (Life-Threatening, Hospitalization, Other)
  Sender: FDA-Public Use
  Company Number: PHBS2007JP06948

PATIENT
  Age: 80 Year
  Sex: Male
  Weight: 52 kg

DRUGS (11)
  1. DIOVAN [Suspect]
     Indication: HYPERTENSION
     Dosage: 20 MG/DAY
     Route: 048
     Dates: start: 20020201, end: 20070309
  2. DIOVAN [Suspect]
     Dosage: 40 MG/DAY
     Route: 048
     Dates: start: 20070403, end: 20070409
  3. VANCOMYCIN HCL [Suspect]
     Indication: PYREXIA
     Dosage: 1.5 G/DAY
     Dates: start: 20070331, end: 20070331
  4. LASIX [Suspect]
     Indication: OEDEMA
     Dosage: 20 MG/DAY
     Route: 048
     Dates: start: 20070405, end: 20070409
  5. LEVOFLOXACIN [Suspect]
     Indication: PYREXIA
     Dosage: 100 MG/DAY
     Route: 048
     Dates: start: 20070329, end: 20070331
  6. FOSMICIN [Suspect]
     Indication: PYREXIA
     Dosage: 1000 MG/DAY
     Route: 048
     Dates: start: 20070331, end: 20070402
  7. EPOGEN [Concomitant]
     Indication: NEPHROGENIC ANAEMIA
     Dosage: 6000 IU, UNK
     Route: 058
     Dates: start: 20070328
  8. HUMULIN 70/30 [Concomitant]
     Indication: DIABETES MELLITUS
     Route: 058
     Dates: start: 20070327, end: 20070403
  9. OMEGACIN [Concomitant]
     Indication: PYREXIA
     Dosage: 300 MG, UNK
     Dates: start: 20070327, end: 20070402
  10. FIRSTCIN [Concomitant]
     Indication: PYREXIA
     Dosage: 1 G, UNK
     Dates: start: 20070409, end: 20070413
  11. FERROMIA [Concomitant]
     Indication: ANAEMIA
     Dosage: 100 MG, UNK
     Route: 048
     Dates: start: 20070327

REACTIONS (18)
  - BASOPHIL COUNT INCREASED [None]
  - BLOOD CREATININE INCREASED [None]
  - BLOOD POTASSIUM DECREASED [None]
  - BLOOD SODIUM DECREASED [None]
  - BLOOD UREA INCREASED [None]
  - BONE MARROW FAILURE [None]
  - EOSINOPHIL COUNT INCREASED [None]
  - FRACTURE [None]
  - HAEMATOCRIT DECREASED [None]
  - HAEMOGLOBIN DECREASED [None]
  - LYMPHOCYTE COUNT DECREASED [None]
  - NEUTROPENIA [None]
  - NEUTROPHIL COUNT DECREASED [None]
  - PYREXIA [None]
  - RED BLOOD CELL COUNT DECREASED [None]
  - RENAL FAILURE [None]
  - URINARY TRACT INFECTION [None]
  - WHITE BLOOD CELL COUNT DECREASED [None]
